FAERS Safety Report 21019926 (Version 8)
Quarter: 2024Q3

REPORT INFORMATION
  Report Type: Report from Study
  Country: US (occurrence: US)
  Receive Date: 20220628
  Receipt Date: 20240822
  Transmission Date: 20241017
  Serious: Yes (Hospitalization, Other)
  Sender: JAZZ
  Company Number: US-JAZZ-2022-US-007657

PATIENT
  Age: 59 Year
  Sex: Female

DRUGS (41)
  1. XYWAV [Suspect]
     Active Substance: CALCIUM OXYBATE\MAGNESIUM OXYBATE\POTASSIUM OXYBATE\SODIUM OXYBATE
     Indication: Narcolepsy
     Dosage: 2.25 GRAM, BID
     Route: 048
     Dates: start: 202110, end: 202110
  2. XYWAV [Suspect]
     Active Substance: CALCIUM OXYBATE\MAGNESIUM OXYBATE\POTASSIUM OXYBATE\SODIUM OXYBATE
     Indication: Cataplexy
     Dosage: DOSE ADJUSTMENTS
     Route: 048
     Dates: start: 202110, end: 202112
  3. XYWAV [Suspect]
     Active Substance: CALCIUM OXYBATE\MAGNESIUM OXYBATE\POTASSIUM OXYBATE\SODIUM OXYBATE
     Dosage: 4.5 GRAM, BID
     Route: 048
     Dates: start: 202112
  4. XYWAV [Suspect]
     Active Substance: CALCIUM OXYBATE\MAGNESIUM OXYBATE\POTASSIUM OXYBATE\SODIUM OXYBATE
     Dosage: 4.25 GRAM, BID
     Route: 048
  5. XYWAV [Suspect]
     Active Substance: CALCIUM OXYBATE\MAGNESIUM OXYBATE\POTASSIUM OXYBATE\SODIUM OXYBATE
     Dosage: UNK
  6. DEXILANT [Suspect]
     Active Substance: DEXLANSOPRAZOLE
     Indication: Product used for unknown indication
     Dosage: UNK
  7. DILAUDID [Suspect]
     Active Substance: HYDROMORPHONE HYDROCHLORIDE
     Indication: Muscle twitching
     Dosage: UNK
     Route: 042
  8. DROPERIDOL [Suspect]
     Active Substance: DROPERIDOL
     Indication: Nausea
     Dosage: UNK
  9. ALFUZOSIN [Suspect]
     Active Substance: ALFUZOSIN
     Indication: Product used for unknown indication
     Dosage: UNK
  10. ABILIFY [Concomitant]
     Active Substance: ARIPIPRAZOLE
     Indication: Product used for unknown indication
     Dosage: UNK
     Dates: start: 19991113
  11. BUPROPION HYDROCHLORIDE [Concomitant]
     Active Substance: BUPROPION HYDROCHLORIDE
     Indication: Product used for unknown indication
     Dosage: UNK
     Dates: start: 19991113
  12. PROVIGIL [Concomitant]
     Active Substance: MODAFINIL
     Indication: Product used for unknown indication
     Dosage: UNK
     Dates: start: 19991113
  13. ADDERALL [Concomitant]
     Active Substance: AMPHETAMINE ASPARTATE\AMPHETAMINE SULFATE\DEXTROAMPHETAMINE SACCHARATE\DEXTROAMPHETAMINE SULFATE
     Indication: Product used for unknown indication
     Dosage: UNK
     Dates: start: 20121113
  14. LIPITOR [Concomitant]
     Active Substance: ATORVASTATIN CALCIUM
     Indication: Product used for unknown indication
     Dosage: UNK
     Dates: start: 20130713
  15. SINGULAIR [Concomitant]
     Active Substance: MONTELUKAST SODIUM
     Indication: Product used for unknown indication
     Dosage: UNK
     Dates: start: 20091113
  16. VALTREX [Concomitant]
     Active Substance: VALACYCLOVIR HYDROCHLORIDE
     Indication: Product used for unknown indication
     Dosage: CAPLET
     Dates: start: 20131113
  17. FLONASE ALLERGY RELIEF [Concomitant]
     Active Substance: FLUTICASONE PROPIONATE
     Indication: Product used for unknown indication
     Dosage: UNK
     Dates: start: 20211116
  18. PERCOCET [Concomitant]
     Active Substance: ACETAMINOPHEN\OXYCODONE HYDROCHLORIDE
     Indication: Product used for unknown indication
     Dosage: UNK
     Dates: start: 20220305
  19. ZOFRAN [Concomitant]
     Active Substance: ONDANSETRON HYDROCHLORIDE
     Indication: Pain
     Dosage: 4 MILLIGRAM
  20. ZOFRAN [Concomitant]
     Active Substance: ONDANSETRON HYDROCHLORIDE
     Dosage: 8 MILLIGRAM
     Dates: start: 20240111
  21. TYLENOL 8HR [Concomitant]
     Active Substance: ACETAMINOPHEN
     Indication: Back pain
     Dosage: 2 DOSAGE FORM, PRN
  22. TYLENOL 8HR [Concomitant]
     Active Substance: ACETAMINOPHEN
     Indication: Neck pain
  23. HYOSCYAMINE [HYOSCYAMINE SULFATE] [Concomitant]
     Indication: Oesophageal spasm
     Dosage: UNK
  24. RITALIN [Concomitant]
     Active Substance: METHYLPHENIDATE HYDROCHLORIDE
     Indication: Product used for unknown indication
     Dosage: UNK
     Dates: start: 20230201
  25. ERGOCALCIFEROL\RETINOL [Concomitant]
     Active Substance: ERGOCALCIFEROL\RETINOL
     Indication: Product used for unknown indication
     Dosage: UNK
  26. COLACE [Concomitant]
     Active Substance: DOCUSATE SODIUM
     Indication: Product used for unknown indication
     Dosage: UNK
  27. COLACE [Concomitant]
     Active Substance: DOCUSATE SODIUM
     Dosage: 100 MILLIGRAM, QD
  28. COLACE [Concomitant]
     Active Substance: DOCUSATE SODIUM
     Dosage: 100 MILLIGRAM, BID
  29. BENEFIBER [Concomitant]
     Active Substance: STARCH, WHEAT
     Indication: Product used for unknown indication
     Dosage: UNK
  30. WEGOVY [Concomitant]
     Active Substance: SEMAGLUTIDE
     Indication: Product used for unknown indication
     Dosage: UNK
  31. CLARITIN [Concomitant]
     Active Substance: LORATADINE
     Indication: Product used for unknown indication
     Dosage: UNK
     Dates: start: 20220929
  32. PEPCID [Concomitant]
     Active Substance: FAMOTIDINE
     Indication: Product used for unknown indication
     Dosage: UNK
     Dates: start: 20240212
  33. MIRALAX [Concomitant]
     Active Substance: POLYETHYLENE GLYCOL 3350
     Indication: Product used for unknown indication
     Dosage: UNK (1 PACKET, BID)
     Dates: start: 20240118
  34. MILK OF MAGNESIA [Concomitant]
     Active Substance: MAGNESIUM HYDROXIDE
     Indication: Product used for unknown indication
     Dosage: CUP
     Dates: start: 20240118
  35. SUCRALFATE [Concomitant]
     Active Substance: SUCRALFATE
     Indication: Product used for unknown indication
     Dosage: UNK
     Dates: start: 20240501
  36. GAS-X MAX STRENGTH [Concomitant]
     Dosage: UNK
     Dates: start: 20240401
  37. BEANO [Concomitant]
     Active Substance: ASPERGILLUS NIGER .ALPHA.-GALACTOSIDASE
     Dosage: UNK (400 UNIT)
  38. XIIDRA [Concomitant]
     Active Substance: LIFITEGRAST
     Dosage: UNK
     Dates: start: 20240626
  39. MUPIROCIN [Concomitant]
     Active Substance: MUPIROCIN
     Dosage: UNK
     Dates: start: 20240703
  40. SODIUM CHLORIDE [Concomitant]
     Active Substance: SODIUM CHLORIDE
     Dosage: UNK
     Dates: start: 20240702
  41. VITAMIN D3 [Concomitant]
     Active Substance: CHOLECALCIFEROL
     Dosage: UNK (3000 UNIT)
     Dates: start: 20240709

REACTIONS (28)
  - Gastrointestinal necrosis [Recovered/Resolved]
  - Intestinal ischaemia [Recovered/Resolved]
  - Intestinal obstruction [Unknown]
  - Haemodynamic instability [Unknown]
  - Ileus [Unknown]
  - Hysterectomy [Unknown]
  - Kidney infection [Unknown]
  - Glaucoma [Unknown]
  - Urinary retention [Unknown]
  - Dysphagia [Recovered/Resolved]
  - Dyskinesia [Recovered/Resolved]
  - Nausea [Unknown]
  - Procedural pain [Unknown]
  - Oesophageal spasm [Recovered/Resolved]
  - Infection [Unknown]
  - Scoliosis [Unknown]
  - Vitamin B12 deficiency [Unknown]
  - Headache [Recovered/Resolved]
  - Urinary bladder polyp [Unknown]
  - Paraesthesia [Recovered/Resolved]
  - Urinary tract infection [Unknown]
  - Middle insomnia [Unknown]
  - Abdominal pain [Unknown]
  - Weight decreased [Unknown]
  - Feeling abnormal [Unknown]
  - Gastrointestinal tract irritation [Unknown]
  - Anal incontinence [Unknown]
  - Intentional dose omission [Unknown]

NARRATIVE: CASE EVENT DATE: 20220503
